FAERS Safety Report 23154242 (Version 1)
Quarter: 2023Q4

REPORT INFORMATION
  Report Type: Spontaneous
  Country: IT (occurrence: IT)
  Receive Date: 20231107
  Receipt Date: 20231107
  Transmission Date: 20240109
  Serious: Yes (Other)
  Sender: FDA-Public Use
  Company Number: IT-SUN PHARMACEUTICAL INDUSTRIES LTD-2023RR-416482

PATIENT
  Age: 71 Year
  Sex: Female

DRUGS (10)
  1. PAROXETINE [Suspect]
     Active Substance: PAROXETINE
     Indication: Anxiety
     Dosage: UNK
     Route: 065
  2. SERTRALINE [Suspect]
     Active Substance: SERTRALINE HYDROCHLORIDE
     Indication: Psychotic disorder
     Dosage: UNK
     Route: 065
  3. VENLAFAXINE [Suspect]
     Active Substance: VENLAFAXINE HYDROCHLORIDE
     Indication: Depression
     Dosage: UNK
     Route: 065
  4. VALPROATE [Suspect]
     Active Substance: VALPROIC ACID
     Indication: Psychotic disorder
     Dosage: UNK
     Route: 065
  5. LITHIUM [Suspect]
     Active Substance: LITHIUM
     Indication: Sedation
     Dosage: UNK
     Route: 065
  6. QUETIAPINE [Suspect]
     Active Substance: QUETIAPINE
     Indication: Psychotic disorder
     Dosage: 100 MILLIGRAM, DAILY
     Route: 065
  7. AMITRIPTYLINE [Suspect]
     Active Substance: AMITRIPTYLINE
     Indication: Anxiety
     Dosage: UNK
     Route: 065
  8. IMIPRAMINE [Suspect]
     Active Substance: IMIPRAMINE
     Indication: Depression
     Dosage: UNK
     Route: 065
  9. MIRTAZAPINE [Suspect]
     Active Substance: MIRTAZAPINE
     Indication: Depression
     Dosage: UNK
     Route: 065
  10. LURASIDONE [Suspect]
     Active Substance: LURASIDONE
     Indication: Psychotic disorder
     Dosage: UNK
     Route: 065

REACTIONS (11)
  - Akathisia [Unknown]
  - Treatment noncompliance [Unknown]
  - Drug ineffective [Unknown]
  - Anxiety [Unknown]
  - Cyclothymic disorder [Unknown]
  - Mood altered [Unknown]
  - Sedation [Unknown]
  - Agitation [Unknown]
  - Irritability [Unknown]
  - Drug intolerance [Unknown]
  - Drug resistance [Unknown]
